FAERS Safety Report 10483456 (Version 1)
Quarter: 2014Q3

REPORT INFORMATION
  Report Type: Spontaneous
  Country: BR (occurrence: None)
  Receive Date: 20140926
  Receipt Date: 20140926
  Transmission Date: 20150326
  Serious: Yes (Death)
  Sender: FDA-Public Use
  Company Number: BR-20140107

PATIENT
  Age: 68 Year
  Sex: Male

DRUGS (2)
  1. DOTAREM [Suspect]
     Active Substance: GADOTERATE MEGLUMINE
     Indication: NUCLEAR MAGNETIC RESONANCE IMAGING ABDOMINAL
     Dosage: 10 ML (10 ML, 1 IN 1D) INTRAVENOUS (NOT OTHERWISE SPECIFIED)
     Route: 042
     Dates: start: 20140627, end: 20140627
  2. BUTILBORMETO DE ESCO POLAMINA (HYOSCINE BUTYLBROMIDE) [Suspect]
     Active Substance: BUTYLSCOPOLAMINE
     Indication: NUCLEAR MAGNETIC RESONANCE IMAGING ABDOMINAL
     Dosage: UNK (20 MG)  INTRAVENOUS (NO OTHERWISE SPECIFIED)
     Route: 042
     Dates: start: 20140627, end: 20140627

REACTIONS (6)
  - Diarrhoea [None]
  - Hyperaemia [None]
  - Cardio-respiratory arrest [None]
  - Vomiting [None]
  - Bronchospasm [None]
  - Discomfort [None]

NARRATIVE: CASE EVENT DATE: 20140627
